FAERS Safety Report 17554644 (Version 1)
Quarter: 2020Q1

REPORT INFORMATION
  Report Type: Spontaneous
  Country: US (occurrence: US)
  Receive Date: 20200318
  Receipt Date: 20200318
  Transmission Date: 20200409
  Serious: No
  Sender: FDA-Public Use
  Company Number: US-AUROBINDO-AUR-APL-2019-033416

PATIENT
  Sex: Female
  Weight: 72 kg

DRUGS (1)
  1. CELECOXIB CAPSULES 200 MG [Suspect]
     Active Substance: CELECOXIB
     Indication: BACK PAIN
     Dosage: UNK, 1 CAPSULE PER DAY
     Route: 065
     Dates: end: 20190528

REACTIONS (1)
  - Aphthous ulcer [Recovering/Resolving]
